FAERS Safety Report 13500147 (Version 6)
Quarter: 2017Q2

REPORT INFORMATION
  Report Type: Report from Study
  Country: CA (occurrence: CA)
  Receive Date: 20170501
  Receipt Date: 20170602
  Transmission Date: 20170830
  Serious: Yes (Hospitalization, Other)
  Sender: FDA-Public Use
  Company Number: CA-PFIZER INC-2017190520

PATIENT
  Age: 53 Year
  Sex: Female

DRUGS (4)
  1. METHOTREXATE SODIUM. [Suspect]
     Active Substance: METHOTREXATE SODIUM
     Dosage: 7.5 MG, QWK
     Route: 065
     Dates: start: 201704
  2. METHOTREXATE SODIUM. [Suspect]
     Active Substance: METHOTREXATE SODIUM
     Dosage: UNK
     Route: 065
  3. TECTA [Suspect]
     Active Substance: PANTOPRAZOLE MAGNESIUM
     Indication: EPIGASTRIC DISCOMFORT
     Dosage: UNK
     Route: 065
  4. ENBREL [Suspect]
     Active Substance: ETANERCEPT
     Indication: RHEUMATOID ARTHRITIS
     Dosage: 50 MG, UNK
     Route: 065
     Dates: start: 20140814

REACTIONS (9)
  - Limb injury [Recovering/Resolving]
  - Sciatica [Recovering/Resolving]
  - Pancreatolithiasis [Recovering/Resolving]
  - Pancreatitis [Recovering/Resolving]
  - Blood pressure increased [Recovering/Resolving]
  - Facial pain [Recovering/Resolving]
  - Epigastric discomfort [Recovering/Resolving]
  - Joint stiffness [Recovering/Resolving]
  - Osteoarthritis [Recovering/Resolving]

NARRATIVE: CASE EVENT DATE: 201704
